FAERS Safety Report 17568770 (Version 1)
Quarter: 2020Q1

REPORT INFORMATION
  Report Type: Spontaneous
  Country: ES (occurrence: ES)
  Receive Date: 20200321
  Receipt Date: 20200321
  Transmission Date: 20200409
  Serious: Yes (Hospitalization, Other)
  Sender: FDA-Public Use
  Company Number: NVSC2020ES074404

PATIENT
  Age: 9 Year
  Sex: Female

DRUGS (6)
  1. FENTANYL. [Suspect]
     Active Substance: FENTANYL
     Indication: INDUCTION OF ANAESTHESIA
     Dosage: UNK
     Route: 065
     Dates: start: 201911
  2. ROCURONIUM BROMIDE. [Suspect]
     Active Substance: ROCURONIUM BROMIDE
     Indication: INDUCTION OF ANAESTHESIA
     Dosage: UNK
     Route: 065
     Dates: start: 201911
  3. NOLOTIL (DIPYRONE) [Suspect]
     Active Substance: METAMIZOLE
     Indication: MAINTENANCE OF ANAESTHESIA
     Dosage: UNK
     Route: 065
     Dates: start: 201911
  4. DESFLURANE. [Suspect]
     Active Substance: DESFLURANE
     Indication: MAINTENANCE OF ANAESTHESIA
     Dosage: UNK
     Route: 065
     Dates: start: 201911
  5. BRIDION [Suspect]
     Active Substance: SUGAMMADEX
     Indication: NEUROMUSCULAR BLOCKADE REVERSAL
     Dosage: 80 MG
     Route: 065
     Dates: start: 201911, end: 201911
  6. PROPOFOL. [Suspect]
     Active Substance: PROPOFOL
     Indication: INDUCTION OF ANAESTHESIA
     Dosage: UNK
     Route: 065
     Dates: start: 201911

REACTIONS (8)
  - Laryngospasm [Recovering/Resolving]
  - Supraventricular tachycardia [Recovering/Resolving]
  - Hypoventilation [Recovering/Resolving]
  - Hypoxia [Recovering/Resolving]
  - Anaphylactic shock [Recovered/Resolved]
  - Respiratory acidosis [Recovering/Resolving]
  - Anaphylactic reaction [Recovering/Resolving]
  - Erythema [Recovering/Resolving]

NARRATIVE: CASE EVENT DATE: 201911
